FAERS Safety Report 25565081 (Version 2)
Quarter: 2025Q3

REPORT INFORMATION
  Report Type: Spontaneous
  Country: CA (occurrence: CA)
  Receive Date: 20250716
  Receipt Date: 20250719
  Transmission Date: 20251020
  Serious: Yes (Other)
  Sender: RANBAXY
  Company Number: CA-SUN PHARMACEUTICAL INDUSTRIES INC-2025R1-516475

PATIENT
  Age: 43 Year
  Sex: Female

DRUGS (7)
  1. REPAGLINIDE [Interacting]
     Active Substance: REPAGLINIDE
     Indication: Cystic fibrosis
     Dosage: 5 MILLIGRAM, DAILY
     Route: 065
  2. REPAGLINIDE [Interacting]
     Active Substance: REPAGLINIDE
     Dosage: 8 MILLIGRAM, DAILY
     Route: 065
  3. REPAGLINIDE [Interacting]
     Active Substance: REPAGLINIDE
     Dosage: 10.5 MILLIGRAM, DAILY
     Route: 065
  4. REPAGLINIDE [Interacting]
     Active Substance: REPAGLINIDE
     Route: 065
  5. REPAGLINIDE [Interacting]
     Active Substance: REPAGLINIDE
     Dosage: 16 MILLIGRAM, DAILY
     Route: 065
     Dates: start: 20230428, end: 20230508
  6. ELEXACAFTOR\IVACAFTOR\TEZACAFTOR [Interacting]
     Active Substance: ELEXACAFTOR\IVACAFTOR\TEZACAFTOR
     Indication: Cystic fibrosis
     Route: 065
     Dates: start: 202212
  7. ELEXACAFTOR\IVACAFTOR\TEZACAFTOR [Interacting]
     Active Substance: ELEXACAFTOR\IVACAFTOR\TEZACAFTOR
     Route: 065
     Dates: start: 202302

REACTIONS (3)
  - Drug interaction [Unknown]
  - Alanine aminotransferase increased [Recovered/Resolved]
  - Aspartate aminotransferase increased [Recovered/Resolved]

NARRATIVE: CASE EVENT DATE: 20230504
